FAERS Safety Report 8464560-6 (Version None)
Quarter: 2012Q2

REPORT INFORMATION
  Report Type: 
  Country: None (occurrence: None)
  Receive Date: 20120323
  Receipt Date: 20111017
  Transmission Date: 20120825
  Serious: Yes (Other)
  Sender: FDA-Public Use
  Company Number: 163-21880-11101955

PATIENT
  Age: 52 Year
  Sex: Male
  Weight: 81.6475 kg

DRUGS (18)
  1. LENALIDOMIDE [Suspect]
     Indication: MULTIPLE MYELOMA
     Dosage: 25 MG, 21/7, PO
     Route: 048
  2. DRONABINOL [Concomitant]
  3. METHADONE HCL [Concomitant]
  4. VITAMIN D [Concomitant]
  5. IBUPROFEN [Concomitant]
  6. PAROXETINE HCL [Concomitant]
  7. CYCLOPHOSPHAMIDE [Concomitant]
  8. COMPAZINE [Concomitant]
  9. WARFARIN SODIUM [Concomitant]
  10. ATENOLOL [Concomitant]
  11. LASIX [Concomitant]
  12. AMLODIPINE [Concomitant]
  13. NORVASC [Concomitant]
  14. ANTIBIOTICS (ANTIBIOTICS) [Concomitant]
  15. SINGULAIR [Concomitant]
  16. BENADRYL [Concomitant]
  17. HYDROCODONE BITARTRATE [Concomitant]
  18. PREDNISONE TAB [Concomitant]

REACTIONS (5)
  - NAUSEA [None]
  - SEASONAL ALLERGY [None]
  - CHILLS [None]
  - RECTAL HAEMORRHAGE [None]
  - MOOD SWINGS [None]
